FAERS Safety Report 5491412-6 (Version None)
Quarter: 2007Q4

REPORT INFORMATION
  Report Type: 
  Country: None (occurrence: None)
  Receive Date: 20071020
  Receipt Date: 20071012
  Transmission Date: 20080405
  Serious: Yes (Hospitalization)
  Sender: FDA-Public Use
  Company Number: JP-ALLERGAN-0705011US

PATIENT
  Sex: Female

DRUGS (1)
  1. ALESION SYRUP [Suspect]
     Indication: RHINITIS SEASONAL
     Dosage: 1 G, QD
     Route: 048
     Dates: start: 20060318, end: 20060424

REACTIONS (3)
  - ASTHMA [None]
  - BRONCHITIS [None]
  - CONJUNCTIVITIS ALLERGIC [None]
